FAERS Safety Report 5128980-X (Version None)
Quarter: 2006Q4

REPORT INFORMATION
  Report Type: 
  Country: None (occurrence: None)
  Receive Date: 20061017
  Receipt Date: 20061005
  Transmission Date: 20070319
  Serious: Yes (Hospitalization)
  Sender: FDA-Public Use
  Company Number: DE-ABBOTT-06P-062-0346021-00

PATIENT
  Sex: Female

DRUGS (3)
  1. KLACID I.V. [Suspect]
     Indication: CHLAMYDIAL INFECTION
     Route: 042
  2. ORNITHINE ASPARTATE [Concomitant]
     Indication: DRUG USE FOR UNKNOWN INDICATION
  3. AMPICILLIN SODIUM [Concomitant]
     Indication: INFECTION

REACTIONS (1)
  - WEIGHT INCREASED [None]
